FAERS Safety Report 19688472 (Version 7)
Quarter: 2022Q2

REPORT INFORMATION
  Report Type: Report from Study
  Country: AU (occurrence: AU)
  Receive Date: 20210811
  Receipt Date: 20220610
  Transmission Date: 20220721
  Serious: Yes (Hospitalization)
  Sender: FDA-Public Use
  Company Number: AU-BRISTOL-MYERS SQUIBB COMPANY-BMS-2021-076224

PATIENT
  Age: 16 Year
  Sex: Male
  Weight: 50 kg

DRUGS (40)
  1. GABAPENTIN [Concomitant]
     Active Substance: GABAPENTIN
     Indication: Product used for unknown indication
     Dosage: 3 TIMES PER DAY?ONGOING
     Route: 048
     Dates: start: 20200714
  2. TRAMADOL [Concomitant]
     Active Substance: TRAMADOL
     Indication: Product used for unknown indication
     Dosage: BD; TWICE PER DAY
     Route: 048
     Dates: start: 20210729, end: 20210801
  3. TRAMADOL [Concomitant]
     Active Substance: TRAMADOL
     Dosage: EVERY 6 HOURS
     Route: 048
     Dates: start: 20210729, end: 20210804
  4. DDAVP [Concomitant]
     Active Substance: DESMOPRESSIN ACETATE
     Indication: Prophylaxis
     Dosage: ONCE
     Route: 042
     Dates: start: 20210728, end: 20210728
  5. ACETAMINOPHEN [Concomitant]
     Active Substance: ACETAMINOPHEN
     Indication: Pain
     Dosage: ONCE
     Route: 042
     Dates: start: 20210728, end: 20210728
  6. ACETAMINOPHEN [Concomitant]
     Active Substance: ACETAMINOPHEN
     Indication: Headache
     Dosage: 4 TIMES PER DAY
     Route: 042
     Dates: start: 20210728, end: 20210729
  7. ACETAMINOPHEN [Concomitant]
     Active Substance: ACETAMINOPHEN
     Indication: Pain in extremity
     Dosage: AS NEEDED
     Route: 048
     Dates: start: 20210729, end: 20210801
  8. ACETAMINOPHEN [Concomitant]
     Active Substance: ACETAMINOPHEN
     Dosage: INTERMITTENT
     Route: 048
     Dates: start: 20210802, end: 20210912
  9. DEXAMETHASONE [Concomitant]
     Active Substance: DEXAMETHASONE
     Indication: Product used for unknown indication
     Dosage: ONCE
     Route: 042
     Dates: start: 20210728, end: 20210728
  10. OXYCODONE [Concomitant]
     Active Substance: OXYCODONE
     Indication: Product used for unknown indication
     Dosage: EVERY 6 HOURS
     Route: 048
     Dates: start: 20210801, end: 20210804
  11. OXYCODONE [Concomitant]
     Active Substance: OXYCODONE
     Dosage: AS NEEDED
     Route: 048
     Dates: start: 20210807
  12. DOCUSATE SODIUM [Concomitant]
     Active Substance: DOCUSATE SODIUM
     Indication: Product used for unknown indication
     Dosage: BD; TWICE PER DAY
     Route: 048
     Dates: start: 20210801, end: 20210807
  13. PARECOXIB [Concomitant]
     Active Substance: PARECOXIB
     Indication: Product used for unknown indication
     Dosage: ONCE
     Route: 042
     Dates: start: 20210728, end: 20210728
  14. KETAMINE [Concomitant]
     Active Substance: KETAMINE
     Indication: Product used for unknown indication
     Dosage: ONCE
     Route: 042
     Dates: start: 20210728, end: 20210728
  15. KETAMINE [Concomitant]
     Active Substance: KETAMINE
     Dosage: ONCE
     Route: 042
     Dates: start: 20210728, end: 20210728
  16. ROCURONIUM [Concomitant]
     Active Substance: ROCURONIUM BROMIDE
     Indication: Product used for unknown indication
     Dosage: ONCE
     Route: 042
     Dates: start: 20210728, end: 20210728
  17. HYDROMORPHONE [Concomitant]
     Active Substance: HYDROMORPHONE
     Indication: Product used for unknown indication
     Dosage: OCCASIONAL
     Route: 042
     Dates: start: 20210728, end: 20210728
  18. HYDROMORPHONE [Concomitant]
     Active Substance: HYDROMORPHONE
     Dosage: ONCE
     Route: 042
     Dates: start: 20210728, end: 20210728
  19. PROPOFOL [Concomitant]
     Active Substance: PROPOFOL
     Indication: Product used for unknown indication
     Dosage: ONCE
     Route: 042
     Dates: start: 20210728, end: 20210728
  20. CEFAZOLIN [Concomitant]
     Active Substance: CEFAZOLIN
     Indication: Product used for unknown indication
     Dosage: ONCE
     Route: 042
     Dates: start: 20210728, end: 20210728
  21. TRANEXAMIC ACID [Concomitant]
     Active Substance: TRANEXAMIC ACID
     Indication: Product used for unknown indication
     Dosage: ONCE
     Route: 042
     Dates: start: 20210728, end: 20210728
  22. REMIFENTANIL [Concomitant]
     Active Substance: REMIFENTANIL
     Indication: Product used for unknown indication
     Dosage: CONTINUOUS
     Route: 042
     Dates: start: 20210728, end: 20210728
  23. METARAMINOL [Concomitant]
     Active Substance: METARAMINOL
     Indication: Product used for unknown indication
     Dosage: INTERMITTENT
     Route: 042
     Dates: start: 20210728, end: 20210728
  24. COMPOUND SODIUM LACTATE [CALCIUM CHLORIDE;POTASSIUM CHLORIDE;SODIUM CH [Concomitant]
     Indication: Product used for unknown indication
     Dosage: CONTINUOUS
     Route: 042
     Dates: start: 20210728, end: 20210728
  25. ONDANSETRON [Concomitant]
     Active Substance: ONDANSETRON
     Indication: Prophylaxis
     Dosage: OCCASIONAL
     Route: 042
     Dates: start: 20210728, end: 20210728
  26. ONDANSETRON [Concomitant]
     Active Substance: ONDANSETRON
     Dosage: AS NEEDED?ONGOING
     Route: 048
     Dates: start: 20210730, end: 20210730
  27. DROPERIDOL [Concomitant]
     Active Substance: DROPERIDOL
     Indication: Product used for unknown indication
     Dosage: ONCE
     Route: 042
     Dates: start: 20210728, end: 20210728
  28. METOCLOPRAMIDE [Concomitant]
     Active Substance: METOCLOPRAMIDE
     Indication: Vomiting
     Dosage: ONCE
     Route: 042
     Dates: start: 20210728, end: 20210728
  29. FENTANYL [Concomitant]
     Active Substance: FENTANYL
     Indication: Product used for unknown indication
     Dosage: CONTINUOUS
     Route: 042
     Dates: start: 20210728, end: 20210731
  30. FENTANYL [Concomitant]
     Active Substance: FENTANYL
     Dosage: 1 DOSAGE FORM= 5 UNITS NOS ?CONTINUOUS
     Route: 042
     Dates: start: 20210728, end: 20210731
  31. DEXTROSE\SODIUM CHLORIDE [Concomitant]
     Active Substance: DEXTROSE\SODIUM CHLORIDE
     Indication: Product used for unknown indication
     Dosage: PRODUCT STRENGTH: 5 PERCENT + 0.9 PERCENT?CONTINUOUS
     Route: 042
     Dates: start: 20210728, end: 20210728
  32. DEXTROSE;POTASSIUM CHLORIDE;SODIUM CHLORIDE [Concomitant]
     Indication: Product used for unknown indication
     Dosage: CONTINUOUS
     Route: 042
     Dates: start: 20210728, end: 20210728
  33. DEXTROSE\SODIUM CHLORIDE [Concomitant]
     Active Substance: DEXTROSE\SODIUM CHLORIDE
     Indication: Product used for unknown indication
     Dosage: CONTINUOUS
     Route: 042
     Dates: start: 20210728, end: 20210728
  34. DEXTROSE\SODIUM CHLORIDE [Concomitant]
     Active Substance: DEXTROSE\SODIUM CHLORIDE
     Dosage: CONTINUOUS
     Route: 042
     Dates: start: 20210729, end: 20210801
  35. DEXTROSE\SODIUM CHLORIDE [Concomitant]
     Active Substance: DEXTROSE\SODIUM CHLORIDE
     Dosage: CONTINUOUS
     Route: 042
     Dates: start: 20210802, end: 20210806
  36. CELECOXIB [Concomitant]
     Active Substance: CELECOXIB
     Indication: Product used for unknown indication
     Dosage: INTERMITTENT
     Route: 048
     Dates: start: 20210720, end: 20210727
  37. MUPIROCIN [Concomitant]
     Active Substance: MUPIROCIN
     Indication: Prophylaxis
     Dosage: MUPIROCIN 2% NASAL OINTMENT?1 DOSAGE FORM: 1 UNIT NOS?BD; TWICE PER DAY
     Route: 045
     Dates: start: 20210724, end: 20210728
  38. CHLORHEXIDINE [Concomitant]
     Active Substance: CHLORHEXIDINE
     Indication: Prophylaxis
     Dosage: CHLORHEXIDINE 2% HAND AND BODY WASH?1 DOSAGE FORM: 1 UNIT NOS?DAILY; PER DAY
     Route: 061
     Dates: start: 20210724, end: 20210728
  39. HEPARIN SODIUM [Concomitant]
     Active Substance: HEPARIN SODIUM
     Indication: Product used for unknown indication
     Dosage: 1 DOSAGE FORM = 250 UNIT NOS?ONCE
     Route: 042
     Dates: start: 20210728, end: 20210728
  40. SODIUM CHLORIDE [Concomitant]
     Active Substance: SODIUM CHLORIDE
     Indication: Product used for unknown indication
     Dosage: ONCE
     Route: 042
     Dates: start: 20210728, end: 20210728

REACTIONS (1)
  - Influenza like illness [Recovered/Resolved]

NARRATIVE: CASE EVENT DATE: 20210803
